FAERS Safety Report 8485624-7 (Version None)
Quarter: 2012Q3

REPORT INFORMATION
  Report Type: 
  Country: None (occurrence: None)
  Receive Date: 20120703
  Receipt Date: 20120626
  Transmission Date: 20120928
  Serious: Yes (Other)
  Sender: FDA-Public Use
  Company Number: BR-PFIZER INC-2012131421

PATIENT
  Age: 72 Year
  Sex: Female

DRUGS (1)
  1. CELEBREX [Suspect]
     Indication: ANALGESIC THERAPY
     Dosage: 200 MG (ONE CAPSULE), 2X/DAY
     Route: 048
     Dates: start: 20000531

REACTIONS (4)
  - LYMPHOMA [None]
  - ARTHRITIS [None]
  - INFLAMMATION [None]
  - PAIN [None]
